FAERS Safety Report 9525298 (Version 1)
Quarter: 2013Q3

REPORT INFORMATION
  Report Type: Spontaneous
  Country: GB (occurrence: GB)
  Receive Date: 20130916
  Receipt Date: 20130916
  Transmission Date: 20140515
  Serious: Yes (Life-Threatening)
  Sender: FDA-Public Use
  Company Number: GB-MYLANLABS-2013S1019878

PATIENT
  Age: 17 Year
  Sex: Male

DRUGS (4)
  1. RISPERIDONE [Suspect]
     Indication: HYPOMANIA
     Route: 048
     Dates: start: 20130307, end: 20130802
  2. RISPERIDONE [Suspect]
     Indication: HYPOMANIA
  3. FLUOXETINE [Concomitant]
     Indication: PRODUCT USED FOR UNKNOWN INDICATION
     Route: 048
     Dates: end: 20130802
  4. OMEPRAZOLE [Concomitant]
     Indication: PRODUCT USED FOR UNKNOWN INDICATION
     Route: 048

REACTIONS (2)
  - Cardiomegaly [Unknown]
  - Cardiomyopathy [Not Recovered/Not Resolved]
